FAERS Safety Report 12104414 (Version 1)
Quarter: 2016Q1

REPORT INFORMATION
  Report Type: Spontaneous
  Country: US (occurrence: US)
  Receive Date: 20160223
  Receipt Date: 20160223
  Transmission Date: 20160526
  Serious: No
  Sender: FDA-Public Use
  Company Number: US-SHIRE-US201601860

PATIENT
  Sex: Male

DRUGS (1)
  1. LIALDA [Suspect]
     Active Substance: MESALAMINE
     Indication: COLITIS ULCERATIVE
     Dosage: 1.2 G (TWO 1.2 G AND ONE 1.2 G), OTHER (IN THE MORNIG AND LATER)
     Route: 048

REACTIONS (3)
  - Inappropriate schedule of drug administration [Unknown]
  - Furuncle [Unknown]
  - Rash [Unknown]
